FAERS Safety Report 4315026-6 (Version None)
Quarter: 2004Q1

REPORT INFORMATION
  Report Type: 
  Country: None (occurrence: None)
  Receive Date: 20040309
  Receipt Date: 20040220
  Transmission Date: 20041129
  Serious: Yes (Other)
  Sender: FDA-Public Use
  Company Number: GBS040214507

PATIENT
  Age: 55 Year
  Sex: Female

DRUGS (2)
  1. EVISTA [Suspect]
     Dosage: 1 DSG FORM DAY
     Dates: start: 20020729
  2. NOURKRIN [Concomitant]

REACTIONS (3)
  - ALOPECIA [None]
  - DRUG INTERACTION [None]
  - HYPERTENSION [None]
